FAERS Safety Report 10313881 (Version 1)
Quarter: 2014Q3

REPORT INFORMATION
  Report Type: Spontaneous
  Country: US (occurrence: None)
  Receive Date: 20140716
  Receipt Date: 20140716
  Transmission Date: 20150326
  Serious: Yes (Other)
  Sender: FDA-Public Use
  Company Number: 54973 AE # 1552

PATIENT
  Age: 13 Month
  Sex: Male

DRUGS (1)
  1. BABY TEETHING [Suspect]
     Active Substance: ARABICA COFFEE BEAN\ATROPA BELLADONNA\CALCIUM PHOSPHATE\CHAMOMILE
     Indication: TEETHING
     Dosage: 2 TABS ON 6/25/14

REACTIONS (10)
  - Confusional state [None]
  - Lethargy [None]
  - Muscular weakness [None]
  - Vomiting [None]
  - Pyrexia [None]
  - Irritability [None]
  - Fatigue [None]
  - Rash [None]
  - Convulsion [None]
  - Heart rate increased [None]

NARRATIVE: CASE EVENT DATE: 20140625
